FAERS Safety Report 9113406 (Version 1)
Quarter: 2013Q1

REPORT INFORMATION
  Report Type: Spontaneous
  Country: US (occurrence: US)
  Receive Date: 20130131
  Receipt Date: 20130131
  Transmission Date: 20140127
  Serious: Yes (Other)
  Sender: FDA-Public Use
  Company Number: US-009507513-1301USA013354

PATIENT
  Sex: Female

DRUGS (11)
  1. SINGULAIR [Suspect]
  2. LANSOPRAZOLE [Concomitant]
  3. ALBUTEROL [Concomitant]
  4. PREDNISONE [Concomitant]
  5. DULOXETINE HYDROCHLORIDE [Concomitant]
  6. ALBUTEROL (+) IPRATROPIUM BROMIDE [Concomitant]
  7. TRAMADOL HYDROCHLORIDE [Concomitant]
  8. GUAIFENESIN [Concomitant]
  9. [THERAPY UNSPECIFIED] [Concomitant]
  10. SULFAMETHIZOLE [Concomitant]
  11. SALMETEROL [Concomitant]

REACTIONS (1)
  - Suicide attempt [Unknown]
